FAERS Safety Report 8438941-0 (Version None)
Quarter: 2012Q2

REPORT INFORMATION
  Report Type: 
  Country: None (occurrence: None)
  Receive Date: 20120605
  Receipt Date: 20120523
  Transmission Date: 20120825
  Serious: Yes (Other)
  Sender: FDA-Public Use
  Company Number: DSA_57603_2012

PATIENT
  Sex: Female

DRUGS (4)
  1. BUPROPION HYDROCHLORIDE [Suspect]
     Indication: DEPRESSION
     Dosage: (450 MG QD ORAL), (300 MG QD ORAL)
     Route: 048
     Dates: start: 19920401
  2. ZYRTEC [Concomitant]
  3. PRENATAL VITAMINS /07426201/ [Concomitant]
  4. PRILOSEC [Concomitant]

REACTIONS (4)
  - MAJOR DEPRESSION [None]
  - MATERNAL EXPOSURE DURING PREGNANCY [None]
  - CAESAREAN SECTION [None]
  - FOETAL MALFORMATION [None]
